FAERS Safety Report 17853825 (Version 1)
Quarter: 2020Q2

REPORT INFORMATION
  Report Type: Report from Study
  Country: None (occurrence: CA)
  Receive Date: 20200602
  Receipt Date: 20200602
  Transmission Date: 20200714
  Serious: Yes (Hospitalization, Other)
  Sender: FDA-Public Use
  Company Number: CA-ABBVIE-20K-028-3422354-00

PATIENT
  Age: 32 Year
  Sex: Male

DRUGS (1)
  1. HUMIRA [Suspect]
     Active Substance: ADALIMUMAB
     Indication: CROHN^S DISEASE
     Route: 058
     Dates: start: 20111206

REACTIONS (11)
  - Small intestinal obstruction [Recovered/Resolved]
  - Gastric mucosa erythema [Not Recovered/Not Resolved]
  - Haematochezia [Recovered/Resolved]
  - Haematemesis [Recovered/Resolved]
  - Intestinal fibrosis [Not Recovered/Not Resolved]
  - Proctalgia [Recovered/Resolved]
  - Pseudopolyp [Not Recovered/Not Resolved]
  - Ileal stenosis [Not Recovered/Not Resolved]
  - Obstruction [Unknown]
  - Defaecation urgency [Not Recovered/Not Resolved]
  - Abdominal adhesions [Not Recovered/Not Resolved]

NARRATIVE: CASE EVENT DATE: 201201
